FAERS Safety Report 24278395 (Version 1)
Quarter: 2024Q3

REPORT INFORMATION
  Report Type: Spontaneous
  Country: CN (occurrence: CN)
  Receive Date: 20240903
  Receipt Date: 20240903
  Transmission Date: 20241016
  Serious: Yes (Hospitalization)
  Sender: BAYER
  Company Number: CN-BAYER-2024A125462

PATIENT
  Age: 66 Year
  Sex: Female
  Weight: 70 kg

DRUGS (4)
  1. GLUCOBAY [Interacting]
     Active Substance: ACARBOSE
     Indication: Diabetes mellitus inadequate control
     Dosage: 50 MG, TID
     Route: 048
     Dates: start: 20240811, end: 20240823
  2. EPALRESTAT [Interacting]
     Active Substance: EPALRESTAT
     Indication: Diabetes mellitus inadequate control
     Dosage: 50 MG, BID
     Route: 048
     Dates: start: 20240811, end: 20240823
  3. INSULIN DEGLUDEC\LIRAGLUTIDE [Interacting]
     Active Substance: INSULIN DEGLUDEC\LIRAGLUTIDE
     Indication: Diabetes mellitus inadequate control
     Dosage: 16 U, QD
     Route: 058
     Dates: start: 20240811, end: 20240823
  4. METFORMIN HYDROCHLORIDE [Interacting]
     Active Substance: METFORMIN HYDROCHLORIDE
     Indication: Diabetes mellitus inadequate control
     Dosage: 0.5 G, TID
     Route: 048
     Dates: start: 20240811, end: 20240823

REACTIONS (4)
  - Hypoglycaemic coma [Recovering/Resolving]
  - Unresponsive to stimuli [None]
  - Fall [None]
  - Respiratory rate increased [None]

NARRATIVE: CASE EVENT DATE: 20240823
